FAERS Safety Report 17916018 (Version 1)
Quarter: 2020Q2

REPORT INFORMATION
  Report Type: Spontaneous
  Country: US (occurrence: US)
  Receive Date: 20200618
  Receipt Date: 20200618
  Transmission Date: 20200714
  Serious: Yes (Hospitalization)
  Sender: FDA-Public Use
  Company Number: None

PATIENT
  Sex: Female

DRUGS (14)
  1. GLATIRAMER [Suspect]
     Active Substance: GLATIRAMER
     Indication: MULTIPLE SCLEROSIS
     Dosage: ?          OTHER FREQUENCY:TIW;?
     Route: 058
     Dates: start: 20190425
  2. ACIDOPHILUS [Concomitant]
     Active Substance: LACTOBACILLUS ACIDOPHILUS
  3. MULTIVITAMIN [Concomitant]
     Active Substance: VITAMINS
  4. VITAMIN D3 [Concomitant]
     Active Substance: CHOLECALCIFEROL
  5. COPAXONE [Concomitant]
     Active Substance: GLATIRAMER ACETATE
  6. AMANTADINE. [Concomitant]
     Active Substance: AMANTADINE HYDROCHLORIDE
  7. CRANBERRY. [Concomitant]
     Active Substance: CRANBERRY
  8. DETROL [Concomitant]
     Active Substance: TOLTERODINE TARTRATE
  9. KEPPRA [Concomitant]
     Active Substance: LEVETIRACETAM
  10. VITA-PLUS E [Concomitant]
  11. PROVIGIL [Concomitant]
     Active Substance: MODAFINIL
  12. TRI-LEGEST [Concomitant]
  13. OMEGA-3 ACIDS [Concomitant]
     Active Substance: OMEGA-3 FATTY ACIDS
  14. BACLOFEN. [Concomitant]
     Active Substance: BACLOFEN

REACTIONS (1)
  - Cerebrovascular accident [None]
